FAERS Safety Report 7713866-4 (Version None)
Quarter: 2011Q3

REPORT INFORMATION
  Report Type: 
  Country: None (occurrence: None)
  Receive Date: 20110826
  Receipt Date: 20110818
  Transmission Date: 20111222
  Serious: Yes (Other)
  Sender: FDA-Public Use
  Company Number: PHHY2011NL74990

PATIENT
  Age: 6 Month
  Sex: Male

DRUGS (1)
  1. PROPRANOLOL [Suspect]
     Indication: HAEMANGIOMA
     Dosage: 2.3 MG/KG, UNK

REACTIONS (2)
  - BLOOD PRESSURE DIASTOLIC DECREASED [None]
  - RESTLESSNESS [None]
